FAERS Safety Report 11379634 (Version 1)
Quarter: 2015Q3

REPORT INFORMATION
  Report Type: Spontaneous
  Country: US (occurrence: None)
  Receive Date: 20150813
  Receipt Date: 20150813
  Transmission Date: 20151125
  Serious: Yes (Other)
  Sender: FDA-Public Use
  Company Number: None

PATIENT
  Age: 69 Year
  Sex: Female
  Weight: 58.97 kg

DRUGS (5)
  1. LISINOPRIL. [Concomitant]
     Active Substance: LISINOPRIL
  2. ATIVAN [Concomitant]
     Active Substance: LORAZEPAM
  3. CIPRO [Suspect]
     Active Substance: CIPROFLOXACIN HYDROCHLORIDE
     Indication: URINARY TRACT INFECTION
     Dosage: 1 TABLET
     Route: 048
     Dates: start: 20150625, end: 20150702
  4. TOFRINAL [Concomitant]
  5. TART CHERRY CAPSULES [Concomitant]

REACTIONS (6)
  - Impaired driving ability [None]
  - Activities of daily living impaired [None]
  - Decreased appetite [None]
  - Oedema peripheral [None]
  - Depression [None]
  - Asthenia [None]

NARRATIVE: CASE EVENT DATE: 20150625
